FAERS Safety Report 9144188 (Version 1)
Quarter: 2013Q1

REPORT INFORMATION
  Report Type: Spontaneous
  Country: US (occurrence: US)
  Receive Date: 20130306
  Receipt Date: 20130306
  Transmission Date: 20140127
  Serious: Yes (Other)
  Sender: FDA-Public Use
  Company Number: US-ROXANE LABORATORIES, INC.-2013-RO-00331RO

PATIENT
  Age: 70 Year
  Sex: Male

DRUGS (7)
  1. LORAZEPAM [Suspect]
     Indication: ANXIETY
  2. LORAZEPAM [Suspect]
     Indication: SLEEP DISORDER
  3. LORAZEPAM [Suspect]
     Indication: SOMATOFORM DISORDER
  4. ZOLPIDEM [Suspect]
     Indication: SLEEP DISORDER
  5. ZOLPIDEM [Suspect]
     Indication: ANXIETY
  6. ZOLPIDEM [Suspect]
     Indication: SOMATOFORM DISORDER
  7. SIMVASTATIN [Suspect]
     Indication: DYSLIPIDAEMIA

REACTIONS (1)
  - Pseudodementia [Recovered/Resolved with Sequelae]
